FAERS Safety Report 15509659 (Version 4)
Quarter: 2024Q1

REPORT INFORMATION
  Report Type: Spontaneous
  Country: IE (occurrence: IE)
  Receive Date: 20181016
  Receipt Date: 20240213
  Transmission Date: 20240410
  Serious: Yes (Other)
  Sender: FDA-Public Use
  Company Number: IE-002147023-PHHY2018IE008708

PATIENT

DRUGS (29)
  1. DICLOFENAC SODIUM [Suspect]
     Active Substance: DICLOFENAC\DICLOFENAC SODIUM
     Indication: Foetal exposure during pregnancy
     Dosage: UNK
     Route: 064
  2. ACETAMINOPHEN [Suspect]
     Active Substance: ACETAMINOPHEN
     Indication: Foetal exposure during pregnancy
     Dosage: UNK
     Route: 064
  3. ACETAMINOPHEN [Suspect]
     Active Substance: ACETAMINOPHEN
     Dosage: UNK
     Route: 064
  4. ACETAMINOPHEN [Suspect]
     Active Substance: ACETAMINOPHEN
     Dosage: UNK
     Route: 054
  5. DICLOFENAC [Suspect]
     Active Substance: DICLOFENAC
     Indication: Foetal exposure during pregnancy
     Dosage: UNK
     Route: 064
  6. RANITIDINE HYDROCHLORIDE [Suspect]
     Active Substance: RANITIDINE HYDROCHLORIDE
     Indication: Foetal exposure during pregnancy
     Dosage: UNK (MATERNAL DOSE: 150 MG)
     Route: 064
  7. DEXMEDETOMIDINE [Suspect]
     Active Substance: DEXMEDETOMIDINE
     Indication: Foetal exposure during pregnancy
     Dosage: UNK (MATERNAL DOSE: 0.8 UG/KG OVER 10 MINUTES)
     Route: 064
  8. DEXMEDETOMIDINE [Suspect]
     Active Substance: DEXMEDETOMIDINE
     Indication: Anxiolytic therapy
  9. PROPOFOL [Suspect]
     Active Substance: PROPOFOL
     Indication: Foetal exposure during pregnancy
     Dosage: UNK (MATERNAL DOSE: 4-6 UG/ML)
     Route: 064
  10. PROPOFOL [Suspect]
     Active Substance: PROPOFOL
     Indication: Induction of anaesthesia
     Dosage: UNK (MATERNAL DOSE: 180 MG)
     Route: 064
  11. PROPOFOL [Suspect]
     Active Substance: PROPOFOL
     Indication: Maintenance of anaesthesia
  12. ALPRAZOLAM [Suspect]
     Active Substance: ALPRAZOLAM
     Indication: Foetal exposure during pregnancy
     Dosage: 250 UG, BID (250 UG TWICE DAILY)
     Route: 064
  13. ALPRAZOLAM [Suspect]
     Active Substance: ALPRAZOLAM
     Indication: Anxiolytic therapy
  14. SODIUM CITRATE [Suspect]
     Active Substance: SODIUM CITRATE
     Indication: Foetal exposure during pregnancy
     Dosage: UNK (MATERNAL DOSE: 30 ML)
     Route: 064
  15. OXYGEN [Suspect]
     Active Substance: OXYGEN
     Indication: Foetal exposure during pregnancy
     Dosage: UNK (MATERNAL DOSE: 50 L/MIN)
     Route: 064
  16. OXYGEN [Suspect]
     Active Substance: OXYGEN
     Dosage: UNK (MATERNAL DOSE: 15 L/MIN)
     Route: 064
  17. OXYGEN [Suspect]
     Active Substance: OXYGEN
     Dosage: UNK (MATERNAL DOSE: 50 L/MIN)
     Route: 045
  18. ROCURONIUM [Suspect]
     Active Substance: ROCURONIUM BROMIDE
     Indication: Foetal exposure during pregnancy
     Dosage: UNK (MATERNAL DOSE: 1 MG/KG)
     Route: 064
  19. LEVOBUPIVACAINE [Suspect]
     Active Substance: LEVOBUPIVACAINE
     Indication: Foetal exposure during pregnancy
     Dosage: UNK (MATERNAL DOSE: 30 ML)
     Route: 064
  20. LEVOBUPIVACAINE [Suspect]
     Active Substance: LEVOBUPIVACAINE
     Indication: Infiltration anaesthesia
  21. LIDOCAINE [Suspect]
     Active Substance: LIDOCAINE
     Indication: Foetal exposure during pregnancy
     Dosage: UNK
     Route: 064
  22. LIDOCAINE [Suspect]
     Active Substance: LIDOCAINE
     Indication: Foetal exposure during pregnancy
     Dosage: UNK
     Route: 064
  23. EPINEPHRINE [Suspect]
     Active Substance: EPINEPHRINE
     Indication: Foetal exposure during pregnancy
     Dosage: UNK (MATERNAL DOSE: 15 ML)
     Route: 064
  24. OMEPRAZOLE [Suspect]
     Active Substance: OMEPRAZOLE
     Indication: Foetal exposure during pregnancy
     Dosage: UNK (MATERNAL DOSE: 20 MG DAILY)
     Route: 064
  25. OMEPRAZOLE [Suspect]
     Active Substance: OMEPRAZOLE
     Indication: Gastrooesophageal reflux disease
  26. ROCURONIUM BROMIDE [Suspect]
     Active Substance: ROCURONIUM BROMIDE
     Indication: Product used for unknown indication
     Dosage: UNK (1 MG/KG)
     Route: 064
  27. EPINEPHRINE\LIDOCAINE HYDROCHLORIDE [Suspect]
     Active Substance: EPINEPHRINE\LIDOCAINE HYDROCHLORIDE
     Indication: Infiltration anaesthesia
     Dosage: UNK (1 IN 20000 (15ML) OF EPINEPHRINE AND 2% LIDOCAINE (ADMINISTERED BY MIXING IN LEVOBUPIVACAINE))
     Route: 064
  28. DICLOFENAC [Suspect]
     Active Substance: DICLOFENAC
     Indication: Foetal exposure during pregnancy
     Dosage: UNK
     Route: 064
  29. DICLOFENAC [Suspect]
     Active Substance: DICLOFENAC
     Dosage: UNK
     Route: 054

REACTIONS (4)
  - Premature baby [Unknown]
  - Low birth weight baby [Unknown]
  - Foetal exposure during pregnancy [Unknown]
  - Maternal exposure during pregnancy [Unknown]
